FAERS Safety Report 25916637 (Version 1)
Quarter: 2025Q4

REPORT INFORMATION
  Report Type: Spontaneous
  Country: EU (occurrence: EU)
  Receive Date: 20251014
  Receipt Date: 20251014
  Transmission Date: 20260117
  Serious: Yes (Other)
  Sender: EMD SERONO INC
  Company Number: None

PATIENT
  Sex: Female

DRUGS (1)
  1. EUTHYROX [Suspect]
     Active Substance: LEVOTHYROXINE SODIUM
     Indication: Product used for unknown indication

REACTIONS (12)
  - Myalgia [Unknown]
  - Asphyxia [Unknown]
  - Chest pain [Unknown]
  - Reaction to excipient [Unknown]
  - Blood thyroid stimulating hormone abnormal [Unknown]
  - Feeling abnormal [Unknown]
  - Cardiac discomfort [Unknown]
  - Blood pressure increased [Unknown]
  - Heart rate increased [Unknown]
  - Tremor [Unknown]
  - Hyperhidrosis [Unknown]
  - Product quality issue [Unknown]
